FAERS Safety Report 15604721 (Version 1)
Quarter: 2018Q4

REPORT INFORMATION
  Report Type: Spontaneous
  Country: LB (occurrence: LB)
  Receive Date: 20181111
  Receipt Date: 20181111
  Transmission Date: 20190205
  Serious: Yes (Other)
  Sender: FDA-Public Use
  Company Number: PHHY2018LB150115

PATIENT
  Age: 23 Year
  Sex: Female

DRUGS (9)
  1. METHOTREXATE. [Suspect]
     Active Substance: METHOTREXATE
     Indication: ACUTE LYMPHOCYTIC LEUKAEMIA RECURRENT
     Dosage: 12 MG, UNK
     Route: 037
     Dates: start: 201712
  2. VENETOCLAX. [Suspect]
     Active Substance: VENETOCLAX
     Dosage: 100 MG, QD
     Route: 065
     Dates: start: 20171229
  3. VINCRISTINE [Suspect]
     Active Substance: VINCRISTINE
     Indication: ACUTE LYMPHOCYTIC LEUKAEMIA RECURRENT
     Dosage: 1.5 MG/M2, QW
     Route: 065
     Dates: start: 201712
  4. L-ASPARAGINASE [Suspect]
     Active Substance: ASPARAGINASE
     Indication: ACUTE LYMPHOCYTIC LEUKAEMIA RECURRENT
     Dosage: 6000 UNITS/M2, Q3W
     Route: 065
     Dates: start: 201712
  5. VENETOCLAX. [Suspect]
     Active Substance: VENETOCLAX
     Dosage: 200 MG, QD
     Route: 065
     Dates: start: 20171229
  6. CYTARABINE. [Suspect]
     Active Substance: CYTARABINE
     Indication: ACUTE LYMPHOCYTIC LEUKAEMIA RECURRENT
     Dosage: 70 MG, UNK (ON DAY 0)
     Route: 037
     Dates: start: 201712
  7. PREDNISONE. [Suspect]
     Active Substance: PREDNISONE
     Indication: ACUTE LYMPHOCYTIC LEUKAEMIA RECURRENT
     Dosage: 60 MG/M2, QD (FOR 28 DAYS)
     Route: 065
     Dates: start: 201712
  8. VENETOCLAX. [Suspect]
     Active Substance: VENETOCLAX
     Indication: ACUTE LYMPHOCYTIC LEUKAEMIA RECURRENT
     Dosage: 20 MG, QD
     Route: 065
     Dates: start: 20171229
  9. VENETOCLAX. [Suspect]
     Active Substance: VENETOCLAX
     Dosage: 50 MG, QD
     Route: 065
     Dates: start: 20171229

REACTIONS (2)
  - Product use in unapproved indication [Unknown]
  - Tumour lysis syndrome [Recovering/Resolving]
